FAERS Safety Report 11579259 (Version 1)
Quarter: 2015Q3

REPORT INFORMATION
  Report Type: Spontaneous
  Country: US (occurrence: US)
  Receive Date: 20150916
  Receipt Date: 20150916
  Transmission Date: 20151125
  Serious: No
  Sender: FDA-Public Use
  Company Number: US-ELI_LILLY_AND_COMPANY-US201307009483

PATIENT
  Sex: Female
  Weight: 74.83 kg

DRUGS (2)
  1. HUMALOG [Suspect]
     Active Substance: INSULIN LISPRO
     Dosage: 12 U, TID
  2. HUMALOG [Suspect]
     Active Substance: INSULIN LISPRO
     Indication: TYPE 2 DIABETES MELLITUS
     Dosage: 12 U, TID
     Route: 058
     Dates: start: 20111129

REACTIONS (4)
  - Visual impairment [Unknown]
  - Injury associated with device [Recovered/Resolved]
  - Haemorrhagic diathesis [Recovered/Resolved]
  - Injection site reaction [Recovered/Resolved]
